FAERS Safety Report 11903485 (Version 1)
Quarter: 2016Q1

REPORT INFORMATION
  Report Type: Spontaneous
  Country: US (occurrence: US)
  Receive Date: 20160108
  Receipt Date: 20160108
  Transmission Date: 20160526
  Serious: No
  Sender: FDA-Public Use
  Company Number: US-TEVA-623548USA

PATIENT
  Sex: Female

DRUGS (2)
  1. QNASL [Suspect]
     Active Substance: BECLOMETHASONE DIPROPIONATE
     Route: 045
  2. GUAIFENISEN [Concomitant]

REACTIONS (1)
  - Secretion discharge [Unknown]
